FAERS Safety Report 18688782 (Version 1)
Quarter: 2020Q4

REPORT INFORMATION
  Report Type: Spontaneous
  Country: US (occurrence: US)
  Receive Date: 20201231
  Receipt Date: 20201231
  Transmission Date: 20210114
  Serious: Yes (Other)
  Sender: FDA-Public Use
  Company Number: None

PATIENT
  Age: 30 Year
  Sex: Male
  Weight: 82.6 kg

DRUGS (10)
  1. LAMOTRIGINE. [Concomitant]
     Active Substance: LAMOTRIGINE
     Dates: start: 20140901
  2. FLUOROURACIL. [Concomitant]
     Active Substance: FLUOROURACIL
     Dates: start: 20201106
  3. PROPRANOLOL [Concomitant]
     Active Substance: PROPRANOLOL HYDROCHLORIDE
     Dates: start: 20201019
  4. PYRODOXINE [Concomitant]
     Dates: start: 20170222
  5. BENZTROPINE. [Concomitant]
     Active Substance: BENZTROPINE
     Dates: start: 20201019
  6. OXALIPLATIN. [Concomitant]
     Active Substance: OXALIPLATIN
     Dates: start: 20201106
  7. CICLESONIDE [Concomitant]
     Active Substance: CICLESONIDE
     Dates: start: 20190322
  8. DOXYCYCLINE. [Concomitant]
     Active Substance: DOXYCYCLINE
     Dates: start: 20201120
  9. CETUXIMAB. [Suspect]
     Active Substance: CETUXIMAB
     Indication: COLORECTAL CANCER
     Route: 042
  10. IRINOTECAN [Concomitant]
     Active Substance: IRINOTECAN
     Dates: start: 20201106

REACTIONS (6)
  - Pruritus [None]
  - Dyspnoea [None]
  - Dizziness [None]
  - Type IV hypersensitivity reaction [None]
  - Rash [None]
  - Pharyngeal swelling [None]

NARRATIVE: CASE EVENT DATE: 20201207
